FAERS Safety Report 12441235 (Version 2)
Quarter: 2016Q3

REPORT INFORMATION
  Report Type: Spontaneous
  Country: IN (occurrence: IN)
  Receive Date: 20160607
  Receipt Date: 20160705
  Transmission Date: 20161109
  Serious: Yes (Death, Hospitalization)
  Sender: FDA-Public Use
  Company Number: IN-PFIZER INC-2016025777

PATIENT
  Age: 59 Year
  Sex: Male

DRUGS (2)
  1. SUTENT [Suspect]
     Active Substance: SUNITINIB MALATE
     Indication: GASTROINTESTINAL STROMAL TUMOUR
     Dosage: 50 MG, 1X/DAY
     Route: 048
     Dates: start: 20120312, end: 201407
  2. SUTENT [Suspect]
     Active Substance: SUNITINIB MALATE
     Dosage: 50 MG, 1X/DAY
     Route: 048
     Dates: start: 201601, end: 20160526

REACTIONS (11)
  - Fall [Unknown]
  - Urinary retention [Unknown]
  - Blood pressure abnormal [Unknown]
  - Dysarthria [Unknown]
  - Heart rate decreased [Unknown]
  - Body temperature decreased [Unknown]
  - Death [Fatal]
  - Liver function test abnormal [Unknown]
  - Haemoglobin decreased [Unknown]
  - Skin disorder [Unknown]
  - Asthenia [Unknown]

NARRATIVE: CASE EVENT DATE: 20160520
